FAERS Safety Report 4647957-1 (Version None)
Quarter: 2005Q2

REPORT INFORMATION
  Report Type: 
  Country: None (occurrence: None)
  Receive Date: 20050428
  Receipt Date: 20050418
  Transmission Date: 20051028
  Serious: Yes (Hospitalization)
  Sender: FDA-Public Use
  Company Number: DE-ABBOTT-05P-062-0297937-00

PATIENT
  Sex: Female
  Weight: 50 kg

DRUGS (4)
  1. KLACID FORTE TABLETS [Suspect]
     Indication: SUICIDE ATTEMPT
     Dosage: 7 TABLETS
     Route: 048
     Dates: start: 20050418, end: 20050418
  2. DICLO ACUT [Suspect]
     Indication: SUICIDE ATTEMPT
     Route: 048
     Dates: start: 20050418, end: 20050418
  3. ALLUNA DRAGEES [Suspect]
     Indication: SUICIDE ATTEMPT
     Dosage: 11 DRAGEES
     Route: 048
     Dates: start: 20050418, end: 20050418
  4. ROXITHROMYCIN [Suspect]
     Indication: SUICIDE ATTEMPT
     Route: 048
     Dates: start: 20050418, end: 20050418

REACTIONS (3)
  - ABDOMINAL PAIN UPPER [None]
  - OVERDOSE [None]
  - SUICIDE ATTEMPT [None]
